FAERS Safety Report 12677918 (Version 1)
Quarter: 2016Q3

REPORT INFORMATION
  Report Type: Spontaneous
  Country: US (occurrence: US)
  Receive Date: 20160823
  Receipt Date: 20160823
  Transmission Date: 20161109
  Serious: No
  Sender: FDA-Public Use
  Company Number: US-TARO-2015TAR00677

PATIENT
  Sex: Female
  Weight: 74.38 kg

DRUGS (8)
  1. WARFARIN SODIUM TABLETS USP 1MG [Suspect]
     Active Substance: WARFARIN SODIUM
     Dosage: 1 MG, 1X/WEEK
  2. INSULIN [Concomitant]
     Active Substance: INSULIN NOS
  3. WARFARIN SODIUM TABLETS USP 4MG [Suspect]
     Active Substance: WARFARIN SODIUM
     Indication: THROMBOSIS
     Dosage: 4 MG, 1X/DAY
     Route: 048
     Dates: start: 201411
  4. SERTRALINE HYDROCHLORIDE. [Concomitant]
     Active Substance: SERTRALINE HYDROCHLORIDE
  5. WARFARIN SODIUM TABLETS USP 1MG [Suspect]
     Active Substance: WARFARIN SODIUM
     Indication: THROMBOSIS
     Dosage: 1 MG, 6X/WEEK
     Route: 048
     Dates: start: 201411
  6. WARFARIN SODIUM TABLETS USP 1MG [Suspect]
     Active Substance: WARFARIN SODIUM
     Dosage: 5 MG, 6X/WEEK
  7. WARFARIN SODIUM TABLETS USP 1MG [Suspect]
     Active Substance: WARFARIN SODIUM
     Dosage: 2 MG, 1X/WEEK
     Route: 048
     Dates: start: 201411
  8. NADOLOL. [Suspect]
     Active Substance: NADOLOL
     Dosage: 20 MG, UNK

REACTIONS (4)
  - Skin tightness [Not Recovered/Not Resolved]
  - Muscle spasms [Not Recovered/Not Resolved]
  - Paraesthesia [Not Recovered/Not Resolved]
  - Skin discolouration [Recovered/Resolved]

NARRATIVE: CASE EVENT DATE: 2015
